FAERS Safety Report 4910660-4 (Version None)
Quarter: 2006Q1

REPORT INFORMATION
  Report Type: 
  Country: None (occurrence: None)
  Receive Date: 20060214
  Receipt Date: 20050824
  Transmission Date: 20060701
  Serious: Yes (Hospitalization, Disabling)
  Sender: FDA-Public Use
  Company Number: FR-NOVOPROD-246474

PATIENT
  Age: 48 Year
  Sex: Male
  Weight: 80 kg

DRUGS (5)
  1. NOVOSEVEN [Suspect]
     Indication: HAEMORRHAGE CONTROL
     Dosage: 9.6 MG, UNK
     Route: 042
     Dates: start: 20050118, end: 20050118
  2. ACLOTINE [Concomitant]
     Indication: THROMBOSIS
     Dosage: 4500 IU
     Route: 042
     Dates: start: 20050118, end: 20050119
  3. BLOOD CELLS, PACKED HUMAN [Concomitant]
     Dosage: 8 DF, UNK
  4. FRESH FROZEN PLASMA [Concomitant]
     Dosage: 8 DF, UNK
  5. NORADRENALINE [Concomitant]

REACTIONS (4)
  - ARTERIAL THROMBOSIS [None]
  - HAEMODYNAMIC INSTABILITY [None]
  - INFLAMMATION [None]
  - PERIPHERAL ISCHAEMIA [None]
